FAERS Safety Report 20489419 (Version 1)
Quarter: 2022Q1

REPORT INFORMATION
  Report Type: Spontaneous
  Country: CN (occurrence: CN)
  Receive Date: 20220218
  Receipt Date: 20220218
  Transmission Date: 20220423
  Serious: Yes (Other)
  Sender: FDA-Public Use
  Company Number: CN-ABBVIE-22K-035-4283168-00

PATIENT
  Age: 46 Year
  Sex: Male
  Weight: 72 kg

DRUGS (10)
  1. VALPROATE SODIUM [Suspect]
     Active Substance: VALPROATE SODIUM
     Indication: Seizure prophylaxis
     Route: 048
     Dates: start: 20190509, end: 20190514
  2. EDARAVONE [Suspect]
     Active Substance: EDARAVONE
     Indication: Antacid therapy
     Route: 041
     Dates: start: 20190506, end: 20190513
  3. ESOMEPRAZOLE SODIUM [Suspect]
     Active Substance: ESOMEPRAZOLE SODIUM
     Indication: Antacid therapy
     Route: 041
     Dates: start: 20190506, end: 20190510
  4. ESOMEPRAZOLE SODIUM [Suspect]
     Active Substance: ESOMEPRAZOLE SODIUM
     Indication: Prophylaxis
  5. SODIUM CHLORIDE [Concomitant]
     Active Substance: SODIUM CHLORIDE
     Indication: Product used for unknown indication
     Dates: start: 20190505, end: 20190513
  6. CEFTAZIDIME [Concomitant]
     Active Substance: CEFTAZIDIME
     Indication: Pneumonia aspiration
     Dates: start: 20190505, end: 20190511
  7. METHYLPREDNISOLONE SODIUM SUCCINATE [Concomitant]
     Active Substance: METHYLPREDNISOLONE SODIUM SUCCINATE
     Indication: Infection
     Dates: start: 20190505, end: 20190510
  8. MANNITOL [Concomitant]
     Active Substance: MANNITOL
     Indication: Dehydration
     Dates: start: 20190505, end: 20190506
  9. ETIMICIN SULFATE;SODIUM CHLORIDE [Concomitant]
     Indication: Pneumonia aspiration
     Dates: start: 20190505, end: 20190511
  10. AMLODIPINE BESYLATE [Concomitant]
     Active Substance: AMLODIPINE BESYLATE
     Indication: Hypertension
     Dates: start: 20190506, end: 20190516

REACTIONS (1)
  - Hepatic enzyme increased [Recovering/Resolving]

NARRATIVE: CASE EVENT DATE: 20190510
